FAERS Safety Report 11251275 (Version 1)
Quarter: 2015Q3

REPORT INFORMATION
  Report Type: Spontaneous
  Country: US (occurrence: US)
  Receive Date: 20150708
  Receipt Date: 20150708
  Transmission Date: 20151125
  Serious: No
  Sender: FDA-Public Use
  Company Number: US-ELI_LILLY_AND_COMPANY-US201110006804

PATIENT
  Sex: Male
  Weight: 58.05 kg

DRUGS (4)
  1. REMERON [Concomitant]
     Active Substance: MIRTAZAPINE
     Dosage: 15 MG, BID
  2. ALIMTA [Suspect]
     Active Substance: PEMETREXED DISODIUM
     Indication: NON-SMALL CELL LUNG CANCER
     Dosage: 820 MG, UNK
     Route: 042
  3. DECADRAN                           /00016001/ [Concomitant]
     Dosage: 10 MG, UNK
     Route: 042
  4. DEXAMETHASONE. [Concomitant]
     Active Substance: DEXAMETHASONE
     Dosage: 4 MG, BID

REACTIONS (7)
  - Dysphonia [Unknown]
  - Swelling face [Unknown]
  - Oral mucosal discolouration [Unknown]
  - Gait disturbance [Unknown]
  - Tongue discolouration [Unknown]
  - Somnolence [Unknown]
  - Asthenia [Unknown]
